FAERS Safety Report 10418617 (Version 3)
Quarter: 2014Q3

REPORT INFORMATION
  Report Type: Spontaneous
  Country: CH (occurrence: CH)
  Receive Date: 20140829
  Receipt Date: 20140915
  Transmission Date: 20150326
  Serious: Yes (Other)
  Sender: FDA-Public Use
  Company Number: PHHY2014CH105654

PATIENT
  Age: 42 Year
  Sex: Male

DRUGS (2)
  1. OMNITROPE [Suspect]
     Active Substance: SOMATROPIN
     Indication: OFF LABEL USE
     Dosage: UNK
  2. OMNITROPE [Suspect]
     Active Substance: SOMATROPIN
     Indication: SPORTS INJURY
     Dosage: 0.67 MG, UNK
     Route: 065

REACTIONS (7)
  - Musculoskeletal stiffness [Recovered/Resolved]
  - Drug ineffective [Recovered/Resolved]
  - Movement disorder [Recovered/Resolved]
  - Panic disorder [Recovered/Resolved]
  - Paralysis [Recovered/Resolved]
  - Balance disorder [Recovered/Resolved]
  - Burning sensation [Recovered/Resolved]
